FAERS Safety Report 6685912-0 (Version None)
Quarter: 2010Q2

REPORT INFORMATION
  Report Type: 
  Country: None (occurrence: None)
  Receive Date: 20100419
  Receipt Date: 20100318
  Transmission Date: 20101027
  Serious: No
  Sender: FDA-Public Use
  Company Number: US-BAYER-201013388BCC

PATIENT
  Age: 90 Year
  Sex: Female
  Weight: 57 kg

DRUGS (5)
  1. ALEVE (CAPLET) [Suspect]
     Indication: ARTHRALGIA
     Dosage: TOTAL DAILY DOSE: 220 MG  UNIT DOSE: 220 MG
     Route: 048
     Dates: start: 20100318
  2. TEXTURNA [Concomitant]
     Route: 065
  3. NEXIUM [Concomitant]
     Route: 065
  4. DARVOCET [Concomitant]
     Route: 065
  5. LEVOXYL [Concomitant]
     Route: 065

REACTIONS (1)
  - DIZZINESS [None]
